FAERS Safety Report 5233692-8 (Version None)
Quarter: 2007Q1

REPORT INFORMATION
  Report Type: 
  Country: None (occurrence: None)
  Receive Date: 20070208
  Receipt Date: 20070205
  Transmission Date: 20070707
  Serious: Yes (Other)
  Sender: FDA-Public Use
  Company Number: US-GLAXOSMITHKLINE-A0638357A

PATIENT
  Age: 53 Year
  Sex: Male

DRUGS (3)
  1. PAROXETINE HCL [Suspect]
     Indication: POST-TRAUMATIC STRESS DISORDER
     Dosage: 30MG PER DAY
     Route: 048
     Dates: end: 20070126
  2. XANAX [Concomitant]
  3. CYMBALTA [Concomitant]

REACTIONS (7)
  - DIARRHOEA [None]
  - DRUG WITHDRAWAL SYNDROME [None]
  - ELECTRIC SHOCK [None]
  - GASTROENTERITIS [None]
  - INSOMNIA [None]
  - TIC [None]
  - VIRAL INFECTION [None]
